FAERS Safety Report 9549157 (Version 4)
Quarter: 2014Q1

REPORT INFORMATION
  Report Type: Report from Study
  Country: PL (occurrence: PL)
  Receive Date: 20130924
  Receipt Date: 20140124
  Transmission Date: 20141002
  Serious: Yes (Hospitalization)
  Sender: FDA-Public Use
  Company Number: PL-UCBSA-098120

PATIENT
  Age: 60 Year
  Sex: Female
  Weight: 60.7 kg

DRUGS (6)
  1. CERTOLIZUMAB PEGOL [Suspect]
     Indication: RHEUMATOID ARTHRITIS
     Route: 058
     Dates: end: 20130910
  2. TREXAN [Concomitant]
     Indication: RESTLESS LEGS SYNDROME
     Dates: start: 201301
  3. AC. FOLICUM [Concomitant]
     Indication: RESTLESS LEGS SYNDROME
     Route: 048
     Dates: start: 201301
  4. IBUPROFEN [Concomitant]
     Indication: RESTLESS LEGS SYNDROME
     Route: 048
     Dates: start: 201301
  5. TUSOPT [Concomitant]
     Indication: GLAUCOMA
     Dates: start: 2001
  6. CLONAZEPAM [Concomitant]
     Indication: MALAISE
     Route: 048
     Dates: start: 1993

REACTIONS (1)
  - Urinary tract infection [Not Recovered/Not Resolved]
